FAERS Safety Report 7494888-8 (Version None)
Quarter: 2011Q2

REPORT INFORMATION
  Report Type: 
  Country: None (occurrence: None)
  Receive Date: 20110520
  Receipt Date: 20110504
  Transmission Date: 20111010
  Serious: No
  Sender: FDA-Public Use
  Company Number: US-B.I. PHARMACEUTICALS,INC./RIDGEFIELD-2011-BP-03379BP

PATIENT
  Sex: Male

DRUGS (7)
  1. PRADAXA [Suspect]
     Indication: DRUG THERAPY CHANGED
  2. MULTAQ [Concomitant]
     Indication: CARDIAC DISORDER
     Dosage: 800 MG
  3. ALLOPURINOL [Concomitant]
     Indication: NEPHROLITHIASIS
     Dosage: 300 MG
  4. PRADAXA [Suspect]
     Indication: ANTICOAGULANT THERAPY
     Dosage: 300 MG
     Route: 048
     Dates: start: 20101201
  5. METFORMIN HCL [Concomitant]
     Indication: DIABETES MELLITUS
  6. VITAMINS [Concomitant]
     Indication: PROPHYLAXIS
  7. CRESTOR [Concomitant]
     Indication: BLOOD CHOLESTEROL INCREASED
     Dosage: 5 MG

REACTIONS (3)
  - NASOPHARYNGITIS [None]
  - PRODUCTIVE COUGH [None]
  - THROAT IRRITATION [None]
